FAERS Safety Report 21756910 (Version 2)
Quarter: 2022Q4

REPORT INFORMATION
  Report Type: Spontaneous
  Country: US (occurrence: None)
  Receive Date: 20221220
  Receipt Date: 20221221
  Transmission Date: 20230112
  Serious: Yes (Hospitalization)
  Sender: FDA-Public Use
  Company Number: 2022A404114

PATIENT
  Age: 59 Year
  Sex: Female

DRUGS (3)
  1. EVUSHELD [Suspect]
     Active Substance: CILGAVIMAB\TIXAGEVIMAB
     Indication: COVID-19 prophylaxis
     Dosage: (TIXAGEVIMAB 300 MG/ CILGAVIMAB 300 MG) 300.0MG ONCE/SINGLE ADMINISTRATION
     Route: 030
     Dates: start: 20221128, end: 20221128
  2. EVUSHELD [Suspect]
     Active Substance: CILGAVIMAB\TIXAGEVIMAB
     Indication: COVID-19 prophylaxis
     Dosage: (TIXAGEVIMAB 300 MG/ CILGAVIMAB 300 MG) ? UNKNOWN DOSE ONCE/SINGLE ADMINISTRATION
     Route: 030
  3. EVUSHELD [Suspect]
     Active Substance: CILGAVIMAB\TIXAGEVIMAB
     Indication: COVID-19 prophylaxis
     Dosage: (TIXAGEVIMAB 300 MG/ CILGAVIMAB 300 MG) ? UNKNOWN DOSE ONCE/SINGLE ADMINISTRATION
     Route: 030

REACTIONS (17)
  - Scleroderma [Unknown]
  - Neuropathy peripheral [Unknown]
  - Pulmonary hypertension [Unknown]
  - Lung disorder [Unknown]
  - Palpitations [Unknown]
  - Supraventricular tachycardia [Unknown]
  - Hypoglycaemia [Unknown]
  - Hypertransaminasaemia [Unknown]
  - Protein albumin ratio abnormal [Unknown]
  - Hypoxia [Unknown]
  - Arrhythmia [Unknown]
  - Rheumatoid arthritis [Unknown]
  - Pericardial effusion [Unknown]
  - Cardiomyopathy [Unknown]
  - Right ventricular dysfunction [Unknown]
  - Anaemia [Unknown]
  - Product use issue [Unknown]

NARRATIVE: CASE EVENT DATE: 20221204
